FAERS Safety Report 23345886 (Version 8)
Quarter: 2025Q4

REPORT INFORMATION
  Report Type: Report from Study
  Country: US (occurrence: US)
  Receive Date: 20231228
  Receipt Date: 20251216
  Transmission Date: 20260118
  Serious: Yes (Other)
  Sender: PFIZER
  Company Number: US-PFIZER INC-202300435476

PATIENT
  Age: 91 Year
  Sex: Female
  Weight: 54.43 kg

DRUGS (6)
  1. ESTRING [Suspect]
     Active Substance: ESTRADIOL
     Indication: Vaginal prolapse
     Dosage: UNK
     Route: 067
  2. ESTRING [Suspect]
     Active Substance: ESTRADIOL
     Indication: Urinary tract infection
  3. LEVOTHYROXINE [Concomitant]
     Active Substance: LEVOTHYROXINE
     Dosage: UNK
  4. ELIQUIS [Concomitant]
     Active Substance: APIXABAN
     Dosage: UNK
  5. EFFEXOR [Concomitant]
     Active Substance: VENLAFAXINE HYDROCHLORIDE
     Dosage: UNK
  6. HYPREN [Concomitant]
     Dosage: UNK

REACTIONS (6)
  - Vaginal haemorrhage [Unknown]
  - Vulvovaginal injury [Unknown]
  - Pain [Unknown]
  - Skin discomfort [Unknown]
  - Therapeutic response unexpected [Unknown]
  - Off label use [Unknown]
